FAERS Safety Report 12328548 (Version 1)
Quarter: 2016Q2

REPORT INFORMATION
  Report Type: Spontaneous
  Country: US (occurrence: US)
  Receive Date: 20160503
  Receipt Date: 20160503
  Transmission Date: 20160815
  Serious: No
  Sender: FDA-Public Use
  Company Number: US-BEH-2015049082

PATIENT
  Age: 58 Year
  Sex: Female
  Weight: 55 kg

DRUGS (18)
  1. SINGULAIR [Concomitant]
     Active Substance: MONTELUKAST SODIUM
  2. LACTULOSE. [Concomitant]
     Active Substance: LACTULOSE
  3. HIZENTRA [Suspect]
     Active Substance: HUMAN IMMUNOGLOBULIN G
     Indication: HYPOGLOBULINAEMIA
     Dosage: EVERY OTHER WEEK
     Route: 058
     Dates: start: 20150125
  4. LYRICA [Concomitant]
     Active Substance: PREGABALIN
  5. SYNTHROID [Concomitant]
     Active Substance: LEVOTHYROXINE SODIUM
  6. ANAFRANIL [Concomitant]
     Active Substance: CLOMIPRAMINE HYDROCHLORIDE
  7. DIPHENHYDRAMINE. [Concomitant]
     Active Substance: DIPHENHYDRAMINE
  8. LIDOCAINE. [Concomitant]
     Active Substance: LIDOCAINE
  9. ALLEGRA ODT [Concomitant]
  10. KLONOPIN [Concomitant]
     Active Substance: CLONAZEPAM
  11. LIDOCAINE/PRILOCAINE [Concomitant]
  12. DEXTROAMP-AMPHET ER [Concomitant]
     Active Substance: AMPHETAMINE ASPARTATE\DEXTROAMPHETAMINE SACCHARATE
  13. SEROQUEL [Concomitant]
     Active Substance: QUETIAPINE FUMARATE
  14. EPINEPHRINE. [Concomitant]
     Active Substance: EPINEPHRINE
  15. HIZENTRA [Suspect]
     Active Substance: HUMAN IMMUNOGLOBULIN G
     Indication: HYPOGLOBULINAEMIA
     Dosage: EVERY OTHER WEEK
     Route: 058
     Dates: start: 20150222, end: 20150222
  16. LITHIUM CARBONATE. [Concomitant]
     Active Substance: LITHIUM CARBONATE
  17. SEROQUEL XR [Concomitant]
     Active Substance: QUETIAPINE FUMARATE
  18. EPIPEN [Concomitant]
     Active Substance: EPINEPHRINE

REACTIONS (4)
  - Headache [Unknown]
  - Abdominal distension [Unknown]
  - Diarrhoea [Unknown]
  - Drug dose omission [Unknown]

NARRATIVE: CASE EVENT DATE: 20150222
